FAERS Safety Report 24783792 (Version 1)
Quarter: 2024Q4

REPORT INFORMATION
  Report Type: Spontaneous
  Country: JP (occurrence: JP)
  Receive Date: 20241227
  Receipt Date: 20241227
  Transmission Date: 20250115
  Serious: Yes (Hospitalization, Other)
  Sender: MERCK
  Company Number: JP-MSD-M2024-54495

PATIENT
  Age: 71 Year
  Sex: Female

DRUGS (6)
  1. KEYTRUDA [Suspect]
     Active Substance: PEMBROLIZUMAB
     Indication: Neuroendocrine carcinoma of the cervix
     Dosage: 200 MILLIGRAM, Q3W
     Route: 041
     Dates: start: 20230802, end: 20240920
  2. CARBOPLATIN [Concomitant]
     Active Substance: CARBOPLATIN
     Indication: Neuroendocrine carcinoma of the cervix
     Dosage: UNK
     Route: 041
     Dates: start: 20230802, end: 20240621
  3. CARBOPLATIN [Concomitant]
     Active Substance: CARBOPLATIN
     Dosage: UNK
     Route: 041
     Dates: start: 20240726, end: 20240920
  4. PACLITAXEL [Concomitant]
     Active Substance: PACLITAXEL
     Indication: Neuroendocrine carcinoma of the cervix
     Dosage: UNK
     Route: 041
     Dates: start: 20230802, end: 20240621
  5. PACLITAXEL [Concomitant]
     Active Substance: PACLITAXEL
     Dosage: UNK
     Route: 041
     Dates: start: 20240726, end: 20240920
  6. BEVACIZUMAB [Concomitant]
     Active Substance: BEVACIZUMAB
     Indication: Neuroendocrine carcinoma of the cervix
     Dosage: UNK
     Route: 041
     Dates: start: 20230802, end: 20240621

REACTIONS (3)
  - Hypothalamo-pituitary disorder [Recovering/Resolving]
  - Malignant neoplasm progression [Unknown]
  - Hypoglycaemia [Unknown]

NARRATIVE: CASE EVENT DATE: 20240101
